FAERS Safety Report 8251803-7 (Version None)
Quarter: 2012Q2

REPORT INFORMATION
  Report Type: 
  Country: None (occurrence: None)
  Receive Date: 20120402
  Receipt Date: 20120312
  Transmission Date: 20120825
  Serious: No
  Sender: FDA-Public Use
  Company Number: US-BAYER-2012-024875

PATIENT
  Age: 16 Year
  Sex: Male
  Weight: 68.027 kg

DRUGS (4)
  1. VITAMIN TAB [Concomitant]
  2. ALLEGRA [Concomitant]
  3. CIPROFLOXACIN HCL [Suspect]
     Indication: PRODUCT USED FOR UNKNOWN INDICATION
  4. PULMICORT [Concomitant]

REACTIONS (2)
  - RASH [None]
  - HYPERSENSITIVITY [None]
